FAERS Safety Report 8655367 (Version 3)
Quarter: 2012Q4

REPORT INFORMATION
  Report Type: 
  Country: ES (occurrence: ES)
  Receive Date: 20120709
  Receipt Date: 20121024
  Transmission Date: 20130627
  Serious: Yes (Death)
  Sender: FDA-Public Use
  Company Number: ES-GENZYME-THYM-1003317

PATIENT
  Age: 5 Year
  Sex: Female
  Weight: 20 kg

DRUGS (4)
  1. THYMOGLOBULINE [Suspect]
     Indication: PROPHYLAXIS AGAINST TRANSPLANT REJECTION
     Dosage: 54 mg/day, qd
     Route: 042
     Dates: start: 20120504, end: 20120508
  2. FLUDARA [Suspect]
     Indication: BONE MARROW CONDITIONING REGIMEN
     Dosage: 25 mg, qd
     Route: 042
     Dates: start: 20120504, end: 20120507
  3. CYCLOPHOSPHAMIDE [Suspect]
     Indication: BONE MARROW CONDITIONING REGIMEN
     Dosage: 180 mg, qd
     Route: 065
     Dates: start: 20120504, end: 20120507
  4. CICLOSPORIN [Suspect]
     Indication: PROPHYLAXIS AGAINST TRANSPLANT REJECTION
     Dosage: UNK
     Route: 065
     Dates: start: 20120505, end: 20120621

REACTIONS (2)
  - Multi-organ failure [Fatal]
  - Post transplant lymphoproliferative disorder [Fatal]
